FAERS Safety Report 19284450 (Version 2)
Quarter: 2021Q2

REPORT INFORMATION
  Report Type: Report from Study
  Country: AU (occurrence: AU)
  Receive Date: 20210521
  Receipt Date: 20210603
  Transmission Date: 20210717
  Serious: Yes (Hospitalization)
  Sender: FDA-Public Use
  Company Number: AU-GLAXOSMITHKLINE-AU2021GSK105397

PATIENT
  Age: 65 Year
  Sex: Male

DRUGS (15)
  1. PHENYLEPHRINE + PREDNISOLONE ACETATE [Concomitant]
     Indication: PROPHYLAXIS
     Dosage: 1 GTT, QD
     Route: 047
     Dates: start: 20190910, end: 20190916
  2. PHENYLEPHRINE + PREDNISOLONE ACETATE [Concomitant]
     Dosage: 1 GTT, QD
     Route: 031
     Dates: start: 20200520
  3. BELANTAMAB MAFODOTIN. [Suspect]
     Active Substance: BELANTAMAB MAFODOTIN
     Indication: PLASMA CELL MYELOMA
     Dosage: 1.9 MG/KG, CYC
     Route: 042
  4. ASPIRIN. [Concomitant]
     Active Substance: ASPIRIN
     Indication: PROPHYLAXIS
     Dosage: 100 MG, QD
     Route: 048
     Dates: start: 20190911
  5. TEMAZEPAM. [Concomitant]
     Active Substance: TEMAZEPAM
     Indication: INSOMNIA
     Dosage: 10 MG, QD
     Route: 048
     Dates: start: 20200327
  6. CARBOMER [Concomitant]
     Active Substance: CARBOMER
     Dosage: 1 GTT, AS REQUIRED
     Dates: start: 20191009
  7. VALACICLOVIR [Concomitant]
     Active Substance: VALACYCLOVIR HYDROCHLORIDE
     Indication: VARICELLA ZOSTER VIRUS INFECTION
     Dosage: 500 MG, QD
     Route: 048
     Dates: start: 20190911, end: 20191003
  8. LOPERAMIDE [Concomitant]
     Active Substance: LOPERAMIDE
     Indication: DIARRHOEA
     Dosage: 2 MG, AS REQUIRED
     Route: 048
     Dates: start: 20200327
  9. LENALIDOMIDE+DEXAMETHASONE [Suspect]
     Active Substance: DEXAMETHASONE\LENALIDOMIDE
     Indication: PLASMA CELL MYELOMA
     Dosage: UNK
  10. VALACICLOVIR [Concomitant]
     Active Substance: VALACYCLOVIR HYDROCHLORIDE
     Dosage: 500 MG, QD
     Route: 048
     Dates: start: 20191010
  11. FLUOXETINE [Concomitant]
     Active Substance: FLUOXETINE HYDROCHLORIDE
     Indication: DEPRESSION
     Dosage: 40 MG, QD
     Route: 048
     Dates: start: 20100901
  12. ZOMETA [Concomitant]
     Active Substance: ZOLEDRONIC ACID
     Indication: PLASMA CELL MYELOMA
     Dosage: 4 MG, EVERY 3 MONTH
     Route: 042
     Dates: start: 2016
  13. SULFAMETHOXAZOLE [Concomitant]
     Active Substance: SULFAMETHOXAZOLE
     Indication: PNEUMOCYSTIS JIROVECII PNEUMONIA
     Dosage: 800 MG, THREE TIMES A WEEK
     Route: 048
     Dates: start: 20190911
  14. TRIMETHOPRIM. [Concomitant]
     Active Substance: TRIMETHOPRIM
     Indication: PNEUMOCYSTIS JIROVECII PNEUMONIA
     Dosage: 160 MG, THREE TIMES PER WEEK
     Route: 048
     Dates: start: 20190911
  15. CARBOMER [Concomitant]
     Active Substance: CARBOMER
     Indication: PROPHYLAXIS
     Dosage: 1 GTT, AS REQUIRED
     Route: 047
     Dates: start: 20190911, end: 20191008

REACTIONS (1)
  - Vertigo [Recovered/Resolved with Sequelae]

NARRATIVE: CASE EVENT DATE: 20210513
